FAERS Safety Report 9107920 (Version 1)
Quarter: 2013Q1

REPORT INFORMATION
  Report Type: Spontaneous
  Country: GB (occurrence: GB)
  Receive Date: 20130221
  Receipt Date: 20130221
  Transmission Date: 20140127
  Serious: Yes (Other)
  Sender: FDA-Public Use
  Company Number: GB-B.I. PHARMACEUTICALS,INC./RIDGEFIELD-2013-UK-00219UK

PATIENT
  Age: 90 Year
  Sex: Female
  Weight: 74 kg

DRUGS (3)
  1. PRADAXA [Suspect]
     Indication: ATRIAL FIBRILLATION
     Dosage: 220 MG
     Dates: start: 20121219, end: 20121221
  2. BISOPROLOL [Concomitant]
  3. IRBESARTAN [Concomitant]

REACTIONS (3)
  - Dyspepsia [Recovered/Resolved]
  - Oesophageal pain [Recovered/Resolved]
  - Gastrooesophageal reflux disease [Recovered/Resolved]
